FAERS Safety Report 5281058-7 (Version None)
Quarter: 2007Q1

REPORT INFORMATION
  Report Type: 
  Country: None (occurrence: None)
  Receive Date: 20070323
  Receipt Date: 20070309
  Transmission Date: 20070707
  Serious: Yes (Hospitalization)
  Sender: FDA-Public Use
  Company Number: 430001M07FRA

PATIENT
  Age: 72 Year
  Sex: Male

DRUGS (3)
  1. NOVANTRONE [Suspect]
     Indication: PROSTATE CANCER METASTATIC
     Dosage: INTRAVENOUS (NOT OTHERWISE SPECIFIED)
     Route: 042
     Dates: start: 20051101, end: 20070101
  2. GONADORELIN /00486501/ [Concomitant]
  3. ZOMETA [Concomitant]

REACTIONS (2)
  - CARDIAC FAILURE [None]
  - LUNG INFECTION [None]
